FAERS Safety Report 9671615 (Version 3)
Quarter: 2014Q2

REPORT INFORMATION
  Report Type: Spontaneous
  Country: JP (occurrence: JP)
  Receive Date: 20131106
  Receipt Date: 20140404
  Transmission Date: 20141212
  Serious: Yes (Hospitalization, Other)
  Sender: FDA-Public Use
  Company Number: JP-ALEXION PHARMACEUTICALS INC.-A201302875

PATIENT
  Sex: 0

DRUGS (1)
  1. SOLIRIS [Suspect]
     Indication: PRODUCT USED FOR UNKNOWN INDICATION

REACTIONS (4)
  - Meningitis streptococcal [Not Recovered/Not Resolved]
  - Respiratory depression [Recovering/Resolving]
  - Convulsion [Unknown]
  - Foetal exposure during pregnancy [Recovered/Resolved]
